FAERS Safety Report 6507658-1 (Version None)
Quarter: 2009Q4

REPORT INFORMATION
  Report Type: 
  Country: None (occurrence: None)
  Receive Date: 20091221
  Receipt Date: 20091214
  Transmission Date: 20100525
  Serious: Yes (Other)
  Sender: FDA-Public Use
  Company Number: PHEH2009US17016

PATIENT
  Sex: Male

DRUGS (2)
  1. EXJADE [Suspect]
     Indication: IRON METABOLISM DISORDER
     Dosage: 1250 MG, QHS
     Route: 048
     Dates: start: 20091101
  2. EXJADE [Suspect]
     Indication: HAEMOCHROMATOSIS

REACTIONS (4)
  - ABDOMINAL DISCOMFORT [None]
  - BONE MARROW TRANSPLANT [None]
  - DIARRHOEA [None]
  - VOMITING [None]
